FAERS Safety Report 21949375 (Version 1)
Quarter: 2023Q1

REPORT INFORMATION
  Report Type: Spontaneous
  Country: US (occurrence: US)
  Receive Date: 20230203
  Receipt Date: 20230203
  Transmission Date: 20230418
  Serious: Yes (Other)
  Sender: FDA-Public Use
  Company Number: US-PROPHARMA-769

PATIENT
  Sex: Female

DRUGS (1)
  1. AYVAKIT [Suspect]
     Active Substance: AVAPRITINIB
     Indication: Systemic mastocytosis
     Route: 065
     Dates: start: 20220106, end: 20230118

REACTIONS (7)
  - Chronic kidney disease [Unknown]
  - Renal impairment [Unknown]
  - Acute kidney injury [Unknown]
  - Hair colour changes [Unknown]
  - Fatigue [Unknown]
  - Symptom recurrence [Unknown]
  - Skin hyperpigmentation [Unknown]
